FAERS Safety Report 11726944 (Version 1)
Quarter: 2015Q4

REPORT INFORMATION
  Report Type: Spontaneous
  Country: US (occurrence: US)
  Receive Date: 20151112
  Receipt Date: 20151112
  Transmission Date: 20160304
  Serious: Yes (Other)
  Sender: FDA-Public Use
  Company Number: US-DRREDDYS-USA/USA/15/0053945

PATIENT
  Age: 22 Year
  Sex: Female

DRUGS (4)
  1. LAMOTRIGINE TABLETS [Interacting]
     Active Substance: LAMOTRIGINE
     Route: 065
  2. DIPHENHYDRAMINE. [Concomitant]
     Active Substance: DIPHENHYDRAMINE
     Indication: PRODUCT USED FOR UNKNOWN INDICATION
     Route: 065
  3. LAMOTRIGINE TABLETS [Interacting]
     Active Substance: LAMOTRIGINE
     Route: 065
  4. LAMOTRIGINE TABLETS [Suspect]
     Active Substance: LAMOTRIGINE
     Indication: BIPOLAR I DISORDER
     Route: 065

REACTIONS (10)
  - Depressed mood [Recovered/Resolved]
  - Exposure during pregnancy [Unknown]
  - Bipolar disorder [Unknown]
  - Inappropriate affect [Recovered/Resolved]
  - Helplessness [Recovered/Resolved]
  - Feelings of worthlessness [Recovered/Resolved]
  - Normal newborn [Unknown]
  - Condition aggravated [Unknown]
  - Mood altered [Recovered/Resolved]
  - Drug level decreased [Unknown]
